FAERS Safety Report 13246920 (Version 3)
Quarter: 2017Q1

REPORT INFORMATION
  Report Type: Spontaneous
  Country: CN (occurrence: CN)
  Receive Date: 20170217
  Receipt Date: 20170324
  Transmission Date: 20170428
  Serious: Yes (Other)
  Sender: FDA-Public Use
  Company Number: CN-BAYER-2017-027510

PATIENT
  Age: 54 Year
  Sex: Male

DRUGS (1)
  1. NEXAVAR [Suspect]
     Active Substance: SORAFENIB
     Indication: RENAL CELL CARCINOMA
     Dosage: DAILY DOSE 400 MG
     Route: 048
     Dates: start: 200812, end: 2011

REACTIONS (4)
  - Diarrhoea [Recovered/Resolved]
  - Metastases to liver [None]
  - Metastases to adrenals [None]
  - Rash [Recovered/Resolved]

NARRATIVE: CASE EVENT DATE: 20130822
